FAERS Safety Report 23708697 (Version 1)
Quarter: 2024Q2

REPORT INFORMATION
  Report Type: Spontaneous
  Country: US (occurrence: US)
  Receive Date: 20240404
  Receipt Date: 20240404
  Transmission Date: 20240716
  Serious: Yes (Other)
  Sender: FDA-Public Use
  Company Number: US-PURDUE PHARMA-USA-2024-0308775

PATIENT
  Sex: Female

DRUGS (5)
  1. OXYCODONE HYDROCHLORIDE [Suspect]
     Active Substance: OXYCODONE HYDROCHLORIDE
     Indication: Migraine
     Dosage: 5 MILLIGRAM, PRN
     Route: 048
  2. NURTEC ODT [Suspect]
     Active Substance: RIMEGEPANT SULFATE
     Indication: Migraine
     Dosage: 75 MILLIGRAM, PRN
     Route: 048
  3. TYLENOL [Suspect]
     Active Substance: ACETAMINOPHEN
     Indication: Migraine
     Dosage: 650-1000 MG, PRN
     Route: 048
  4. TYLENOL WITH CODEINE [Suspect]
     Active Substance: ACETAMINOPHEN\CODEINE PHOSPHATE
     Indication: Migraine
     Dosage: 30-60 MG, PRN
     Route: 048
  5. SERTRALINE [Concomitant]
     Active Substance: SERTRALINE HYDROCHLORIDE
     Indication: Anxiety
     Dosage: UNK
     Route: 048
     Dates: start: 20220822

REACTIONS (2)
  - Gestational hypertension [Recovered/Resolved]
  - Exposure during pregnancy [Unknown]

NARRATIVE: CASE EVENT DATE: 20230124
